FAERS Safety Report 5292589-8 (Version None)
Quarter: 2007Q2

REPORT INFORMATION
  Report Type: 
  Country: None (occurrence: None)
  Receive Date: 20070404
  Receipt Date: 20070319
  Transmission Date: 20071010
  Serious: Yes (Hospitalization)
  Sender: FDA-Public Use
  Company Number: FSC_0083_2007

PATIENT
  Age: 75 Year
  Sex: Female

DRUGS (10)
  1. ISOPTIN [Suspect]
     Indication: HYPERTENSION
     Dosage: 240 MG QD UNK
     Dates: start: 20060619, end: 20070226
  2. MYCOPHENOLATE MOFETIL [Suspect]
     Indication: NEUROPATHY
     Dosage: 500 MG BID PO
     Route: 048
     Dates: start: 20061107, end: 20070222
  3. RAMIPRIL [Concomitant]
  4. IRBESARTAN [Concomitant]
  5. FUROSEMIDE [Concomitant]
  6. MOXONIDINE [Concomitant]
  7. POTASSIUM CANRENOATE [Concomitant]
  8. OMEPRAZOLE [Concomitant]
  9. LORAZEPAM [Concomitant]
  10. PREDNISONE TAB [Concomitant]

REACTIONS (5)
  - BLOOD ALKALINE PHOSPHATASE INCREASED [None]
  - CARDIAC FAILURE [None]
  - CHOLESTASIS [None]
  - GAMMA-GLUTAMYLTRANSFERASE INCREASED [None]
  - HYPERTENSIVE CRISIS [None]
